FAERS Safety Report 25318843 (Version 1)
Quarter: 2025Q2

REPORT INFORMATION
  Report Type: Spontaneous
  Country: GB (occurrence: GB)
  Receive Date: 20250515
  Receipt Date: 20250515
  Transmission Date: 20250717
  Serious: Yes (Hospitalization, Other)
  Sender: RANBAXY
  Company Number: GB-ROCHE-10000273042

PATIENT
  Age: 65 Year
  Sex: Female
  Weight: 63 kg

DRUGS (23)
  1. LENALIDOMIDE [Suspect]
     Active Substance: LENALIDOMIDE
     Indication: Follicular lymphoma
     Dosage: 5 MILLIGRAM, DAILY
     Route: 065
     Dates: start: 20240508, end: 20250222
  2. RITUXIMAB [Suspect]
     Active Substance: RITUXIMAB
     Indication: Follicular lymphoma
     Dosage: 600 MILLIGRAM, 1DOSE/4WEEKS
     Route: 065
     Dates: start: 20240508, end: 20240918
  3. EPCORITAMAB [Suspect]
     Active Substance: EPCORITAMAB
     Indication: Follicular lymphoma
     Route: 065
     Dates: start: 20240515, end: 20240515
  4. EPCORITAMAB [Suspect]
     Active Substance: EPCORITAMAB
     Route: 065
     Dates: start: 20240529, end: 20240529
  5. EPCORITAMAB [Suspect]
     Active Substance: EPCORITAMAB
     Route: 065
     Dates: start: 20240605, end: 20240605
  6. EPCORITAMAB [Suspect]
     Active Substance: EPCORITAMAB
     Route: 065
     Dates: start: 20240612
  7. EPCORITAMAB [Suspect]
     Active Substance: EPCORITAMAB
     Route: 065
     Dates: start: 20240508, end: 20240508
  8. ACYCLOVIR [Concomitant]
     Active Substance: ACYCLOVIR
     Indication: Product used for unknown indication
     Dosage: 400 MILLIGRAM, DAILY
     Route: 065
     Dates: start: 20240508
  9. ALLOPURINOL [Concomitant]
     Active Substance: ALLOPURINOL
     Indication: Prophylaxis
     Dosage: 300 MILLIGRAM, DAILY
     Route: 065
     Dates: start: 20240508
  10. APIXABAN [Concomitant]
     Active Substance: APIXABAN
     Indication: Thrombosis prophylaxis
     Dosage: 2.5 MILLIGRAM, DAILY
     Route: 065
     Dates: start: 20240508, end: 20240521
  11. APIXABAN [Concomitant]
     Active Substance: APIXABAN
     Route: 065
     Dates: start: 20240522
  12. AZITHROMYCIN [Concomitant]
     Active Substance: AZITHROMYCIN
     Indication: Product used for unknown indication
     Dosage: 250 MILLIGRAM, 1 DOSE/3 WEEKS
     Route: 065
     Dates: start: 20240524
  13. BECLOMETHASONE DIPROPIONATE [Concomitant]
     Active Substance: BECLOMETHASONE DIPROPIONATE
     Indication: Asthma
     Dosage: 100 MCG, DAILY
     Route: 065
     Dates: start: 20240313
  14. BISOPROLOL [Concomitant]
     Active Substance: BISOPROLOL
     Indication: Product used for unknown indication
     Dosage: 2.5 MILLIGRAM, DAILY
     Route: 065
     Dates: start: 20240522
  15. CLOBETASOL PROPIONATE [Concomitant]
     Active Substance: CLOBETASOL PROPIONATE
     Indication: Rash erythematous
     Dosage: 1 DOSAGE FORM, DAILY
     Route: 065
     Dates: start: 20240522
  16. HYDROCORTISONE BUTYRATE [Concomitant]
     Active Substance: HYDROCORTISONE BUTYRATE
     Indication: Rash erythematous
     Dosage: 1 DOSAGE FORM, DAILY
     Route: 065
     Dates: start: 20240522
  17. COTRIMOXAZOLE [Concomitant]
     Active Substance: SULFAMETHOXAZOLE\TRIMETHOPRIM
     Indication: Prophylaxis
     Route: 065
     Dates: start: 20240508
  18. FEXOFENADINE [Concomitant]
     Active Substance: FEXOFENADINE HYDROCHLORIDE
     Indication: Urticaria
     Dosage: 180 MILLIGRAM, DAILY
     Route: 065
     Dates: start: 20220811
  19. FUROSEMIDE [Concomitant]
     Active Substance: FUROSEMIDE
     Indication: Generalised oedema
     Dosage: 20 MILLIGRAM, DAILY
     Route: 065
     Dates: start: 20240515
  20. Isopto hyoscine hydrobromide [Concomitant]
     Indication: Nausea
     Route: 065
     Dates: start: 20241125
  21. HYPROMELLOSES [Concomitant]
     Active Substance: HYPROMELLOSES
     Indication: Dry eye
     Dosage: 0.4 MILLILITER, DAILY
     Route: 065
     Dates: start: 20120906
  22. LOSARTAN [Concomitant]
     Active Substance: LOSARTAN
     Indication: Hypertension
     Dosage: 50 MILLIGRAM, DAILY
     Route: 065
     Dates: start: 20240523
  23. ADENOSINE [Concomitant]
     Active Substance: ADENOSINE
     Indication: Product used for unknown indication
     Route: 065

REACTIONS (1)
  - Acute kidney injury [Recovered/Resolved]

NARRATIVE: CASE EVENT DATE: 20250223
